FAERS Safety Report 9181684 (Version 1)
Quarter: 2013Q1

REPORT INFORMATION
  Report Type: Spontaneous
  Country: US (occurrence: None)
  Receive Date: 20130321
  Receipt Date: 20130321
  Transmission Date: 20140127
  Serious: Yes (Hospitalization)
  Sender: FDA-Public Use
  Company Number: None

PATIENT
  Age: 91 Year
  Sex: Female
  Weight: 77 kg

DRUGS (5)
  1. GLIMEPIRIDE [Suspect]
     Indication: DIABETES MELLITUS
     Dosage: PRIOR TO ADMISSION
     Route: 048
  2. OMEGA-3 FATTY ACID [Concomitant]
  3. ASPIRIN [Concomitant]
  4. ATORVASTATIN [Concomitant]
  5. ATENOLOL [Concomitant]

REACTIONS (5)
  - Dizziness [None]
  - Fall [None]
  - Tremor [None]
  - Blood pressure increased [None]
  - Blood glucose decreased [None]
